FAERS Safety Report 7423224-8 (Version None)
Quarter: 2011Q2

REPORT INFORMATION
  Report Type: 
  Country: None (occurrence: None)
  Receive Date: 20110419
  Receipt Date: 20110406
  Transmission Date: 20111010
  Serious: Yes (Hospitalization, Other)
  Sender: FDA-Public Use
  Company Number: DE-ROCHE-763433

PATIENT
  Sex: Male
  Weight: 82 kg

DRUGS (13)
  1. FOLFOX REGIMEN [Concomitant]
     Dosage: 6 CYCLES TOGETHER WITH BEVACIZUMAB
     Dates: start: 20080614, end: 20090218
  2. AVASTIN [Suspect]
     Dosage: TOGETHER WITH CAPECITABINE AND IRINOTECAN (XELIRI REGIMEN)
     Route: 042
     Dates: start: 20081119, end: 20091210
  3. AVASTIN [Suspect]
     Dosage: MONOTHERAPY
     Route: 042
     Dates: start: 20100108, end: 20100223
  4. AVASTIN [Suspect]
     Dosage: TOGETHER WITH CAPECITABINE
     Route: 042
     Dates: start: 20110303
  5. AVASTIN [Suspect]
     Indication: RECTAL CANCER RECURRENT
     Dosage: TOGETHER WITH FOLFOX 4
     Route: 042
     Dates: start: 20080714, end: 20090218
  6. DEXAMETHASONE [Concomitant]
     Indication: ANTIEMETIC SUPPORTIVE CARE
     Dosage: ON DAY 1
     Route: 042
     Dates: start: 20080714
  7. GRANISETRON HCL [Concomitant]
     Indication: ANTIEMETIC SUPPORTIVE CARE
     Dosage: ON DAY 1
     Route: 042
  8. IRINOTECAN [Concomitant]
     Dosage: ACORDING TO XELIRI REGIMEN TOGETHER WITH BEVACIZUMAB, DOSIS REDUCTION DUE TO AE'S (SEE MH SECTION)
     Dates: start: 20091210
  9. XELODA [Suspect]
     Indication: RECTAL CANCER RECURRENT
     Dosage: MONOTHERAPY, 4 CYCLES
     Route: 065
     Dates: start: 20090801, end: 20091101
  10. FOLFOX REGIMEN [Concomitant]
     Dosage: 2 CYCLES MONOTHERAPY
     Dates: start: 20080603, end: 20080617
  11. XELODA [Suspect]
     Dosage: ACCORDING TO XELIRI REGIMEN TOGETHER WITH BEVACIZUMAB, 2 CYCLES
     Route: 065
     Dates: start: 20091119, end: 20091210
  12. XELODA [Suspect]
     Dosage: TOGETHER WITH BEVACIZUMAB
     Route: 065
     Dates: start: 20110303
  13. IRINOTECAN [Concomitant]
     Dosage: ACORDING TO XELIRI REGIMEN TOGETHER WITH BEVACIZUMAB
     Dates: start: 20091119

REACTIONS (3)
  - POLYCYTHAEMIA [None]
  - DYSPNOEA [None]
  - NEOPLASM MALIGNANT [None]
